FAERS Safety Report 8980157 (Version 1)
Quarter: 2012Q4

REPORT INFORMATION
  Report Type: 
  Country: DE (occurrence: DE)
  Receive Date: 20121221
  Receipt Date: 20121221
  Transmission Date: 20130627
  Serious: Yes (Death, Hospitalization, Other)
  Sender: FDA-Public Use
  Company Number: GXKR2012DE003921

PATIENT
  Age: 79 Year
  Sex: Male

DRUGS (5)
  1. METFORMIN [Suspect]
     Indication: DIABETES MELLITUS
     Dosage: 1000 mg, BID
     Route: 048
  2. PHENPROCOUMON [Concomitant]
     Indication: ATRIAL FIBRILLATION
     Dosage: adjusted to INR
     Route: 048
  3. RAMIPRIL [Concomitant]
     Indication: HYPERTENSION
     Dosage: 5 mg, QD
     Route: 048
  4. ALLOPURINOL [Concomitant]
     Indication: HYPERURICAEMIA
     Dosage: 100 mg, QD
     Route: 048
  5. VALPROAT [Concomitant]
     Indication: EPILEPSY
     Dosage: 300 mg, BID
     Route: 048

REACTIONS (3)
  - Renal failure acute [Fatal]
  - Lactic acidosis [Fatal]
  - Shock [Unknown]
